FAERS Safety Report 12396316 (Version 1)
Quarter: 2016Q2

REPORT INFORMATION
  Report Type: Spontaneous
  Country: MX (occurrence: MX)
  Receive Date: 20160524
  Receipt Date: 20160524
  Transmission Date: 20160815
  Serious: Yes (Death)
  Sender: FDA-Public Use
  Company Number: MX-ROCHE-1762697

PATIENT
  Age: 70 Year
  Weight: 68 kg

DRUGS (2)
  1. CAPECITABINE. [Suspect]
     Active Substance: CAPECITABINE
     Indication: BREAST CANCER
     Dosage: CURRENT THERAPY, 7 CYCLES ADMINISTERED
     Route: 065
     Dates: start: 20150904, end: 20160324
  2. TRASTUZUMAB [Suspect]
     Active Substance: TRASTUZUMAB
     Indication: BREAST CANCER
     Dosage: CURRENT THERAPY, 7 CYCLES ADMINISTERED
     Route: 065
     Dates: start: 20150904, end: 20160315

REACTIONS (2)
  - Death [Fatal]
  - Off label use [Fatal]
